FAERS Safety Report 5134756-X (Version None)
Quarter: 2006Q4

REPORT INFORMATION
  Report Type: 
  Country: None (occurrence: None)
  Receive Date: 20060831
  Receipt Date: 20060519
  Transmission Date: 20070319
  Serious: No
  Sender: FDA-Public Use
  Company Number: 2006-BP-05045BP

PATIENT
  Sex: Female

DRUGS (8)
  1. SPIRIVA [Suspect]
     Indication: ASTHMA
     Dosage: 18 MCG (18 MCG,1 IN 1 D),IH
     Route: 055
     Dates: start: 20050601
  2. SPIRIVA [Suspect]
     Indication: CHRONIC OBSTRUCTIVE PULMONARY DISEASE
     Dosage: 18 MCG (18 MCG,1 IN 1 D),IH
     Route: 055
     Dates: start: 20050601
  3. SPIRIVA [Suspect]
     Indication: EMPHYSEMA
     Dosage: 18 MCG (18 MCG,1 IN 1 D),IH
     Route: 055
     Dates: start: 20050601
  4. SINGULAIR [Concomitant]
  5. SYNTHROID [Concomitant]
  6. LISINOPRIL [Concomitant]
  7. EVISTA [Concomitant]
  8. LEVOXYL [Concomitant]

REACTIONS (1)
  - DRUG INEFFECTIVE [None]
